APPROVED DRUG PRODUCT: FLUCONAZOLE
Active Ingredient: FLUCONAZOLE
Strength: 50MG/5ML
Dosage Form/Route: FOR SUSPENSION;ORAL
Application: A079150 | Product #001 | TE Code: AB
Applicant: AUROBINDO PHARMA LTD
Approved: Sep 18, 2009 | RLD: No | RS: No | Type: RX